FAERS Safety Report 20469672 (Version 1)
Quarter: 2022Q1

REPORT INFORMATION
  Report Type: Spontaneous
  Country: US (occurrence: None)
  Receive Date: 20220213
  Receipt Date: 20220213
  Transmission Date: 20220423
  Serious: Yes (unspecified)
  Sender: FDA-Public Use
  Company Number: None

PATIENT
  Age: 32 Year
  Sex: Female
  Weight: 60.75 kg

DRUGS (1)
  1. QWO [Suspect]
     Active Substance: COLLAGENASE CLOSTRIDIUM HISTOLYTICUM-AAES
     Indication: Cellulite
     Dates: start: 20211005, end: 20211027

REACTIONS (5)
  - Contusion [None]
  - Skin discolouration [None]
  - Injection site indentation [None]
  - Burning sensation [None]
  - Skin discolouration [None]

NARRATIVE: CASE EVENT DATE: 20211005
